FAERS Safety Report 14577369 (Version 1)
Quarter: 2018Q1

REPORT INFORMATION
  Report Type: Spontaneous
  Country: US (occurrence: US)
  Receive Date: 20180226
  Receipt Date: 20180226
  Transmission Date: 20180509
  Serious: Yes (Hospitalization)
  Sender: FDA-Public Use
  Company Number: None

PATIENT
  Age: 44 Year
  Sex: Male
  Weight: 90 kg

DRUGS (1)
  1. HUMIRA [Suspect]
     Active Substance: ADALIMUMAB
     Indication: PSORIASIS
     Dosage: QUANTITY:1 INJECTION(S);OTHER FREQUENCY:1 EVERY 2 WEEKS;OTHER ROUTE:INJECTION PEN?
     Dates: start: 20100201, end: 20170612

REACTIONS (1)
  - Colitis [None]

NARRATIVE: CASE EVENT DATE: 20170619
